FAERS Safety Report 7931024-5 (Version None)
Quarter: 2011Q4

REPORT INFORMATION
  Report Type: 
  Country: None (occurrence: None)
  Receive Date: 20111121
  Receipt Date: 20111102
  Transmission Date: 20120403
  Serious: Yes (Hospitalization)
  Sender: FDA-Public Use
  Company Number: PHHY2011DK96813

PATIENT
  Sex: Female
  Weight: 70 kg

DRUGS (1)
  1. CITALOPRAM HYDROBROMIDE [Suspect]
     Indication: DEPRESSION
     Dosage: 40 MG, QD
     Route: 048
     Dates: start: 20100501

REACTIONS (3)
  - INTRA-UTERINE DEATH [None]
  - MATERNAL EXPOSURE DURING PREGNANCY [None]
  - PLACENTAL DISORDER [None]
